FAERS Safety Report 6332844-3 (Version None)
Quarter: 2009Q3

REPORT INFORMATION
  Report Type: 
  Country: None (occurrence: None)
  Receive Date: 20090828
  Receipt Date: 20090821
  Transmission Date: 20100115
  Serious: Yes (Hospitalization)
  Sender: FDA-Public Use
  Company Number: US-ABBOTT-06P-163-0345512-00

PATIENT
  Sex: Female
  Weight: 88.53 kg

DRUGS (10)
  1. HUMIRA [Suspect]
     Indication: RHEUMATOID ARTHRITIS
     Route: 058
     Dates: start: 20041101, end: 20060927
  2. HUMIRA [Suspect]
     Route: 058
     Dates: start: 20060927
  3. NORVASC [Concomitant]
     Indication: BLOOD PRESSURE
     Route: 048
  4. COREG [Concomitant]
     Indication: BLOOD PRESSURE
     Route: 048
  5. POTASSIUM CHLORIDE [Concomitant]
     Indication: BLOOD POTASSIUM
     Route: 048
  6. ADVAIR HFA [Concomitant]
     Indication: ASTHMA
     Route: 055
  7. FLONASE [Concomitant]
     Indication: ASTHMA
     Route: 045
  8. NEXIUM [Concomitant]
     Indication: HYPERCHLORHYDRIA
     Route: 048
  9. REGLAN [Concomitant]
     Indication: HYPERCHLORHYDRIA
     Route: 048
  10. LORTAB [Concomitant]
     Indication: PAIN
     Route: 048

REACTIONS (3)
  - CEREBROVASCULAR ACCIDENT [None]
  - INCORRECT DOSE ADMINISTERED [None]
  - WRONG TECHNIQUE IN DRUG USAGE PROCESS [None]
